FAERS Safety Report 7608742-1 (Version None)
Quarter: 2011Q3

REPORT INFORMATION
  Report Type: 
  Country: None (occurrence: None)
  Receive Date: 20110714
  Receipt Date: 20110714
  Transmission Date: 20111222
  Serious: Yes (Hospitalization)
  Sender: FDA-Public Use
  Company Number: None

PATIENT
  Sex: Female
  Weight: 90 kg

DRUGS (10)
  1. CHLORTHALIDONE [Interacting]
  2. ADVAIR DISKUS 100/50 [Interacting]
  3. PREMPRO [Interacting]
  4. MOTRIN [Interacting]
  5. METFORMIN HCL [Interacting]
  6. HYDROXYUREA [Interacting]
  7. LOVASTATIN [Interacting]
  8. CLONIDINE [Interacting]
  9. BENAZEPRIL HYDROCHLORIDE [Suspect]
     Indication: HYPERTENSION
     Dosage: 40MG
     Route: 048
  10. DILTIAZEM [Interacting]

REACTIONS (1)
  - SWOLLEN TONGUE [None]
